FAERS Safety Report 16035691 (Version 1)
Quarter: 2019Q1

REPORT INFORMATION
  Report Type: Spontaneous
  Country: DE (occurrence: DE)
  Receive Date: 20190305
  Receipt Date: 20190305
  Transmission Date: 20190418
  Serious: Yes (Hospitalization)
  Sender: FDA-Public Use
  Company Number: DE-ROCHE-260745

PATIENT
  Age: 52 Year
  Sex: Male

DRUGS (5)
  1. LARIAM [Suspect]
     Active Substance: MEFLOQUINE HYDROCHLORIDE
     Indication: MALARIA PROPHYLAXIS
     Dosage: FOUR TABLETS IN TOTAL.
     Route: 048
     Dates: start: 20010205, end: 20010305
  2. POLIOMYELITIS VACCINE [Concomitant]
     Active Substance: POLIOMYELITIS VACCINE
     Indication: IMMUNISATION
     Route: 065
  3. CHOLERA VACCINE [Concomitant]
     Active Substance: CHOLERA VACCINE
     Indication: IMMUNISATION
     Route: 065
  4. YELLOW FEVER VACCINE NOS [Concomitant]
     Active Substance: YELLOW FEVER VIRUS STRAIN 17D-204 LIVE ANTIGEN
     Indication: IMMUNISATION
     Route: 065
  5. TETANUS TOXOID ADSORBED (VACCINE) [Concomitant]
     Active Substance: CLOSTRIDIUM TETANI TOXOID ANTIGEN (FORMALDEHYDE INACTIVATED)
     Indication: IMMUNISATION
     Route: 065

REACTIONS (5)
  - Polyneuropathy [Recovered/Resolved with Sequelae]
  - Ataxia [Recovered/Resolved with Sequelae]
  - Radiculopathy [Recovered/Resolved with Sequelae]
  - Paraesthesia [Recovered/Resolved with Sequelae]
  - Guillain-Barre syndrome [Recovered/Resolved with Sequelae]

NARRATIVE: CASE EVENT DATE: 20010301
